FAERS Safety Report 5014564-0 (Version None)
Quarter: 2006Q2

REPORT INFORMATION
  Report Type: 
  Country: None (occurrence: None)
  Receive Date: 20060525
  Receipt Date: 20060512
  Transmission Date: 20061013
  Serious: Yes (Other)
  Sender: FDA-Public Use
  Company Number: 2006030407

PATIENT
  Age: 68 Year
  Sex: Female
  Weight: 88.4514 kg

DRUGS (1)
  1. BEXTRA [Suspect]
     Indication: OSTEOARTHRITIS
     Dosage: 10 MG, ORAL
     Route: 048
     Dates: start: 20040319

REACTIONS (1)
  - STEVENS-JOHNSON SYNDROME [None]
